FAERS Safety Report 13294093 (Version 1)
Quarter: 2017Q1

REPORT INFORMATION
  Report Type: Spontaneous
  Country: EG (occurrence: EG)
  Receive Date: 20170303
  Receipt Date: 20170303
  Transmission Date: 20170428
  Serious: Yes (Hospitalization)
  Sender: FDA-Public Use
  Company Number: EG-BAYER-2017-039350

PATIENT
  Age: 67 Year
  Sex: Male

DRUGS (3)
  1. ACETYLSALICYLIC ACID({=100 MG) [Suspect]
     Active Substance: ASPIRIN
  2. MIDAZOLAM [Concomitant]
     Active Substance: MIDAZOLAM HYDROCHLORIDE
     Indication: SEDATION
     Dosage: 1 MG, UNK
     Dates: start: 2009
  3. MIDAZOLAM [Concomitant]
     Active Substance: MIDAZOLAM HYDROCHLORIDE
     Indication: SEDATION
     Dosage: 1 MG, UNK
     Dates: start: 2009

REACTIONS (8)
  - Upper gastrointestinal haemorrhage [None]
  - Haemoglobin decreased [Recovered/Resolved]
  - Melaena [None]
  - Hemiplegia [None]
  - Cerebral infarction [None]
  - Ischaemic stroke [None]
  - Hypovolaemia [None]
  - Haematemesis [None]

NARRATIVE: CASE EVENT DATE: 2009
